FAERS Safety Report 10762121 (Version 1)
Quarter: 2015Q1

REPORT INFORMATION
  Report Type: Spontaneous
  Country: DK (occurrence: DE)
  Receive Date: 20150204
  Receipt Date: 20150204
  Transmission Date: 20150721
  Serious: Yes (Hospitalization)
  Sender: FDA-Public Use
  Company Number: DE-FRI-1000074137

PATIENT
  Age: 22 Year
  Sex: Female
  Weight: 93 kg

DRUGS (2)
  1. FOLSAEURE [Concomitant]
     Active Substance: FOLIC ACID
     Indication: PROPHYLAXIS OF NEURAL TUBE DEFECT
     Route: 048
     Dates: start: 20131119, end: 20131203
  2. CITALOPRAM [Suspect]
     Active Substance: CITALOPRAM HYDROBROMIDE
     Indication: DEPRESSION
     Dosage: 40 MG
     Route: 048
     Dates: start: 20131019, end: 20140227

REACTIONS (7)
  - Oligohydramnios [Recovered/Resolved]
  - Pregnancy [Recovered/Resolved]
  - Preterm premature rupture of membranes [Recovered/Resolved]
  - Cervix haematoma uterine [Recovered/Resolved]
  - Abortion late [Recovered/Resolved]
  - Haemorrhage in pregnancy [Recovered/Resolved]
  - Premature labour [Recovered/Resolved]

NARRATIVE: CASE EVENT DATE: 20131019
